FAERS Safety Report 7150220-0 (Version None)
Quarter: 2010Q4

REPORT INFORMATION
  Report Type: 
  Country: None (occurrence: None)
  Receive Date: 20101124
  Receipt Date: 20101116
  Transmission Date: 20110411
  Serious: No
  Sender: FDA-Public Use
  Company Number: 2010SP059543

PATIENT
  Age: 75 Year
  Sex: Female
  Weight: 63.5036 kg

DRUGS (10)
  1. CHLOR-TRIMETON [Suspect]
     Indication: COUGH
     Dosage: 12 MG;PO
     Route: 048
     Dates: start: 19520101
  2. CHLOR-TRIMETON [Suspect]
     Indication: DYSPHONIA
     Dosage: 12 MG;PO
     Route: 048
     Dates: start: 19520101
  3. CHLOR-TRIMETON [Suspect]
     Indication: RHINORRHOEA
     Dosage: 12 MG;PO
     Route: 048
     Dates: start: 19520101
  4. CELEBREX [Concomitant]
  5. VITAMINS /00067501/ [Concomitant]
  6. DELSYM [Concomitant]
  7. BETA BLOCKER [Concomitant]
  8. ATENOLOL [Concomitant]
  9. DIOVAN [Concomitant]
  10. LAMICTAL [Concomitant]

REACTIONS (4)
  - DRUG EFFECT DECREASED [None]
  - INCORRECT DOSE ADMINISTERED [None]
  - LEUKAEMIA [None]
  - WHITE BLOOD CELL MORPHOLOGY ABNORMAL [None]
